FAERS Safety Report 10229695 (Version 1)
Quarter: 2014Q2

REPORT INFORMATION
  Report Type: Spontaneous
  Country: US (occurrence: US)
  Receive Date: 20140611
  Receipt Date: 20140611
  Transmission Date: 20141212
  Serious: No
  Sender: FDA-Public Use
  Company Number: US-B.I. PHARMACEUTICALS,INC./RIDGEFIELD-2014-BI-24543BP

PATIENT
  Age: 73 Year
  Sex: Female
  Weight: 43 kg

DRUGS (9)
  1. GILOTRIF [Suspect]
     Indication: LUNG NEOPLASM MALIGNANT
     Dosage: 40 MG
     Route: 048
     Dates: start: 20140326, end: 20140521
  2. DOXYCYCLINE [Concomitant]
     Dosage: 100 MG
     Route: 048
     Dates: start: 201401
  3. GELEX WASH [Concomitant]
     Indication: ORAL PAIN
     Route: 061
  4. ASPIRIN [Concomitant]
     Route: 065
  5. METFORMIN [Concomitant]
     Indication: DIABETES MELLITUS
     Route: 065
  6. ALBUTEROL [Concomitant]
     Indication: ASTHMA
     Route: 065
  7. SYNTHROID [Concomitant]
     Indication: GOITRE
     Route: 065
  8. LOVASTATIN [Concomitant]
     Indication: BLOOD CHOLESTEROL INCREASED
     Route: 065
  9. LOSARTAN [Concomitant]
     Indication: HYPERTENSION
     Route: 065

REACTIONS (1)
  - Drug ineffective [Not Recovered/Not Resolved]
